FAERS Safety Report 17974308 (Version 1)
Quarter: 2020Q3

REPORT INFORMATION
  Report Type: Spontaneous
  Country: GB (occurrence: GB)
  Receive Date: 20200702
  Receipt Date: 20200702
  Transmission Date: 20201103
  Serious: Yes (Life-Threatening)
  Sender: FDA-Public Use
  Company Number: GB-PFIZER INC-2020253026

PATIENT
  Age: 45 Year
  Sex: Male
  Weight: 65 kg

DRUGS (1)
  1. MEROPENEM. [Suspect]
     Active Substance: MEROPENEM
     Indication: PNEUMONIA
     Dosage: 2 G STAT DOSE.
     Route: 042
     Dates: start: 20200611, end: 20200611

REACTIONS (4)
  - Wheezing [Recovering/Resolving]
  - Lip swelling [Recovering/Resolving]
  - Anaphylactic reaction [Recovering/Resolving]
  - Rash [Recovering/Resolving]

NARRATIVE: CASE EVENT DATE: 20200611
